FAERS Safety Report 25509587 (Version 4)
Quarter: 2025Q3

REPORT INFORMATION
  Report Type: Spontaneous
  Country: EU (occurrence: EU)
  Receive Date: 20250703
  Receipt Date: 20250826
  Transmission Date: 20251020
  Serious: Yes (Hospitalization, Other)
  Sender: ABBVIE
  Company Number: EU-RICHTER-2025-GR-007475

PATIENT
  Age: 35 Year
  Sex: Female
  Weight: 55 kg

DRUGS (3)
  1. LEVONORGESTREL [Suspect]
     Active Substance: LEVONORGESTREL
     Indication: Heavy menstrual bleeding
     Route: 015
     Dates: start: 20240816, end: 20250513
  2. LEVONORGESTREL [Suspect]
     Active Substance: LEVONORGESTREL
     Indication: Vaginal haemorrhage
  3. LEVONORGESTREL [Suspect]
     Active Substance: LEVONORGESTREL
     Indication: Hormonal contraception

REACTIONS (5)
  - Ectopic pregnancy [Not Recovered/Not Resolved]
  - Drug ineffective [Unknown]
  - Intra-abdominal haemorrhage [Unknown]
  - Pregnancy on contraceptive [Unknown]
  - Maternal exposure during pregnancy [Unknown]

NARRATIVE: CASE EVENT DATE: 20250101
